FAERS Safety Report 22068384 (Version 6)
Quarter: 2023Q2

REPORT INFORMATION
  Report Type: Spontaneous
  Country: JP (occurrence: JP)
  Receive Date: 20230307
  Receipt Date: 20230629
  Transmission Date: 20230722
  Serious: Yes (Hospitalization)
  Sender: FDA-Public Use
  Company Number: JP-GLAXOSMITHKLINE-JP2023JPN034793

PATIENT

DRUGS (14)
  1. DAPRODUSTAT [Suspect]
     Active Substance: DAPRODUSTAT
     Indication: Nephrogenic anaemia
     Dosage: 4 MG
     Route: 048
     Dates: start: 20230111, end: 20230124
  2. DAPRODUSTAT [Suspect]
     Active Substance: DAPRODUSTAT
     Dosage: 6 MG
     Route: 048
     Dates: start: 20230125, end: 20230207
  3. DAPRODUSTAT [Suspect]
     Active Substance: DAPRODUSTAT
     Dosage: 8 MG
     Route: 048
     Dates: start: 20230208, end: 20230221
  4. DAPRODUSTAT [Suspect]
     Active Substance: DAPRODUSTAT
     Dosage: 12 MG
     Route: 048
     Dates: start: 20230222, end: 20230409
  5. DAPRODUSTAT [Suspect]
     Active Substance: DAPRODUSTAT
     Dosage: 8 MG
     Route: 048
     Dates: start: 20230410
  6. ERYTHROPOIETIN [Concomitant]
     Active Substance: ERYTHROPOIETIN
     Indication: Nephrogenic anaemia
     Dosage: 3000 IU, BID THREE TIMES A WEEK
  7. AMLODIPINE BESYLATE [Concomitant]
     Active Substance: AMLODIPINE BESYLATE
     Indication: Hypertension
     Dosage: UNK
  8. VALSARTAN [Concomitant]
     Active Substance: VALSARTAN
     Indication: Hypertension
     Dosage: UNK
  9. ALLEGRA [Concomitant]
     Active Substance: FEXOFENADINE HYDROCHLORIDE
     Indication: Seasonal allergy
     Dosage: UNK
  10. LEVOCARNITINE HYDROCHLORIDE [Concomitant]
     Active Substance: LEVOCARNITINE HYDROCHLORIDE
     Indication: Carnitine decreased
     Dosage: UNK
  11. P-TOL [Concomitant]
     Indication: Hyperphosphataemia
     Dosage: UNK
  12. DIETARY SUPPLEMENT\PROBIOTICS [Concomitant]
     Active Substance: DIETARY SUPPLEMENT\PROBIOTICS NOS
     Dosage: UNK
  13. REBAMIPIDE [Concomitant]
     Active Substance: REBAMIPIDE
     Dosage: UNK
  14. MIYA-BM [Concomitant]
     Active Substance: CLOSTRIDIUM BUTYRICUM SPORES STRAIN M-55
     Dosage: UNK

REACTIONS (3)
  - Haemoglobin decreased [Recovered/Resolved]
  - Product use issue [Unknown]
  - Off label use [Unknown]

NARRATIVE: CASE EVENT DATE: 20230111
